FAERS Safety Report 16166747 (Version 3)
Quarter: 2019Q2

REPORT INFORMATION
  Report Type: Spontaneous
  Country: RS (occurrence: RS)
  Receive Date: 20190407
  Receipt Date: 20190508
  Transmission Date: 20190711
  Serious: Yes (Death)
  Sender: FDA-Public Use
  Company Number: RS-BIOGEN-2019BI00722323

PATIENT
  Age: 18 Month
  Sex: Female
  Weight: 10 kg

DRUGS (1)
  1. SPINRAZA [Suspect]
     Active Substance: NUSINERSEN
     Indication: SPINAL MUSCULAR ATROPHY
     Dosage: FIFTH DOSE RECEVIED ON 24 JAN 2019
     Route: 037

REACTIONS (2)
  - Chronic respiratory failure [Fatal]
  - Influenza [Fatal]

NARRATIVE: CASE EVENT DATE: 20190205
